FAERS Safety Report 7501408-8 (Version None)
Quarter: 2011Q2

REPORT INFORMATION
  Report Type: 
  Country: None (occurrence: None)
  Receive Date: 20110524
  Receipt Date: 20110520
  Transmission Date: 20111010
  Serious: Yes (Disabling, Other)
  Sender: FDA-Public Use
  Company Number: US-PFIZER INC-2010060683

PATIENT
  Sex: Male
  Weight: 83.9 kg

DRUGS (10)
  1. OXYCODONE [Concomitant]
  2. VIAGRA [Concomitant]
     Dosage: UNK
     Route: 048
  3. AMITRIPTYLINE [Concomitant]
     Indication: SLEEP DISORDER
     Dosage: 50 MG, 2X/DAY
     Route: 048
  4. OXYCODONE [Concomitant]
     Indication: PAIN
     Dosage: UNK MG, UNK
     Route: 048
  5. NEURONTIN [Suspect]
     Dosage: 300 MG, 3X/DAY
     Route: 048
     Dates: start: 20010101, end: 20091201
  6. OXYCONTIN [Concomitant]
     Indication: PAIN
     Dosage: 40 MG, UNK
     Route: 048
  7. TRAZODONE [Concomitant]
     Indication: PAIN
     Dosage: 4 MG, 2X/DAY
     Route: 048
     Dates: start: 20010101
  8. KLONOPIN [Concomitant]
     Dosage: 2 MG, 3X/DAY
     Route: 048
  9. NEURONTIN [Suspect]
     Indication: PERIPHERAL NERVE INJURY
     Dosage: 300 MG, UNK
     Route: 048
  10. NEURONTIN [Suspect]
     Dosage: 300 MG,5X DAY
     Route: 048
     Dates: start: 20010101, end: 20091201

REACTIONS (10)
  - PERIPHERAL NERVE INJURY [None]
  - SPINAL FUSION SURGERY [None]
  - LYMPHADENOPATHY [None]
  - DRUG INEFFECTIVE [None]
  - GAIT DISTURBANCE [None]
  - DYSPNOEA [None]
  - JOINT EFFUSION [None]
  - PAIN [None]
  - DIZZINESS [None]
  - DYSARTHRIA [None]
